FAERS Safety Report 25416183 (Version 2)
Quarter: 2025Q4

REPORT INFORMATION
  Report Type: Spontaneous
  Country: EU (occurrence: EU)
  Receive Date: 20250610
  Receipt Date: 20251212
  Transmission Date: 20260118
  Serious: Yes (Other)
  Sender: CHEPLAPHARM
  Company Number: EU-CHEPLA-2025007026

PATIENT
  Age: 14 Year
  Sex: Female

DRUGS (22)
  1. GANCICLOVIR [Suspect]
     Active Substance: GANCICLOVIR
     Indication: Cytomegalovirus infection
     Dosage: INTRAVENOUS GFR-ADJUSTED GANCICLOVIR TWICE DAILY WAS INITIATED ON DAY +45
     Route: 042
  2. GANCICLOVIR [Suspect]
     Active Substance: GANCICLOVIR
     Indication: BK virus infection
     Dosage: INTRAVENOUS GFR-ADJUSTED GANCICLOVIR TWICE DAILY WAS INITIATED ON DAY +45
     Route: 042
  3. MYCOPHENOLATE MOFETIL [Concomitant]
     Active Substance: MYCOPHENOLATE MOFETIL
     Indication: Prophylaxis against graft versus host disease
     Dosage: - THE IMMUNOSUPPRESSIVE REGIMEN CONSISTED OF TACROLIMUS AND MYCOPHENOLATE MOFETIL (MMF)?- 3 YEAR...
  4. MYCOPHENOLATE MOFETIL [Concomitant]
     Active Substance: MYCOPHENOLATE MOFETIL
     Indication: Immunosuppressant drug therapy
     Dosage: - THE IMMUNOSUPPRESSIVE REGIMEN CONSISTED OF TACROLIMUS AND MYCOPHENOLATE MOFETIL (MMF)?- 3 YEAR...
  5. METHYLPREDNISOLONE [Concomitant]
     Active Substance: METHYLPREDNISOLONE
     Indication: Transplant rejection
     Dosage: - THE PATIENT RECEIVED TREATMENT WITH HIGH-DOSE METHYLPREDNISOLONE PULSE THERAPY (A TOTAL OF THRE...
  6. LAMOTRIGINE [Concomitant]
     Active Substance: LAMOTRIGINE
     Indication: Petit mal epilepsy
     Dosage: - THE PATIENT DEVELOPED ABSENCE EPILEPSY, WHICH WAS CONTROLLED WITH LAMOTRIGINE AND ETHOSUXIMIDE?...
  7. LAMOTRIGINE [Concomitant]
     Active Substance: LAMOTRIGINE
     Indication: Myelosuppression
     Dosage: - THE PATIENT DEVELOPED ABSENCE EPILEPSY, WHICH WAS CONTROLLED WITH LAMOTRIGINE AND ETHOSUXIMIDE?...
  8. LAMOTRIGINE [Concomitant]
     Active Substance: LAMOTRIGINE
     Indication: Seizure
     Dosage: - THE PATIENT DEVELOPED ABSENCE EPILEPSY, WHICH WAS CONTROLLED WITH LAMOTRIGINE AND ETHOSUXIMIDE?...
  9. ETHOSUXIMIDE [Concomitant]
     Active Substance: ETHOSUXIMIDE
     Indication: Seizure
     Dosage: - THE PATIENT DEVELOPED ABSENCE EPILEPSY, WHICH WAS CONTROLLED WITH LAMOTRIGINE AND ETHOSUXIMIDE?...
  10. ETHOSUXIMIDE [Concomitant]
     Active Substance: ETHOSUXIMIDE
     Indication: Petit mal epilepsy
     Dosage: - THE PATIENT DEVELOPED ABSENCE EPILEPSY, WHICH WAS CONTROLLED WITH LAMOTRIGINE AND ETHOSUXIMIDE?...
  11. CEFTAZIDIME [Concomitant]
     Active Substance: CEFTAZIDIME
     Indication: Febrile neutropenia
     Dosage: - EMPIRIC THERAPY WITH WIDE-SPECTRUM ANTIBACTERIAL AGENT CEFTAZIDIME FOR FEBRILE NEUTROPENIA WAS ...
  12. MEROPENEM [Concomitant]
     Active Substance: MEROPENEM
     Indication: Febrile neutropenia
     Dosage: - EMPIRIC THERAPY WITH WIDE-SPECTRUM ANTIBACTERIAL AGENT CEFTAZIDIME FOR FEBRILE NEUTROPENIA WAS ...
  13. FLUCONAZOLE [Concomitant]
     Active Substance: FLUCONAZOLE
     Indication: Antifungal prophylaxis
     Dosage: EMPIRIC THERAPY WITH WIDE-SPECTRUM ANTIBACTERIAL AGENT CEFTAZIDIME FOR FEBRILE NEUTROPENIA WAS ST...
  14. LEVETIRACETAM [Concomitant]
     Active Substance: LEVETIRACETAM
     Indication: Seizure
     Dosage: THE PATIENT WAS CONTINUED WITH THREE ANTICONVULSANTS (LEVETIRACETAM, ETHOSUXIMIDE AND LAMOTRIGINE).
  15. BASILIXIMAB [Concomitant]
     Active Substance: BASILIXIMAB
     Dosage: - INDUCTION WITH BASILIXIMAB
  16. CYCLOSPORINE [Concomitant]
     Active Substance: CYCLOSPORINE
     Indication: Immunosuppressant drug therapy
     Dosage: - TACROLIMUS WAS SWITCHED TO CYCLOSPORIN A (CSA) DURING THE DONOR SEARCH?- GRAFT-VERSUS-HOST DIS...
  17. CYCLOSPORINE [Concomitant]
     Active Substance: CYCLOSPORINE
     Indication: Prophylaxis against graft versus host disease
     Dosage: - TACROLIMUS WAS SWITCHED TO CYCLOSPORIN A (CSA) DURING THE DONOR SEARCH?- GRAFT-VERSUS-HOST DIS...
  18. PIPERACILLIN SODIUM\TAZOBACTAM SODIUM [Concomitant]
     Active Substance: PIPERACILLIN SODIUM\TAZOBACTAM SODIUM
     Dosage: - SEVERAL EPISODES OF FEBRILE NEUTROPENIA WERE MANAGED WITH BROAD-SPECTRUM ANTIBACTERIAL (CEFTAZI...
  19. ITRACONAZOLE [Concomitant]
     Active Substance: ITRACONAZOLE
     Indication: Antifungal prophylaxis
     Dosage: - SEVERAL EPISODES OF FEBRILE NEUTROPENIA WERE MANAGED WITH BROAD-SPECTRUM ANTIBACTERIAL (CEFTAZI...
  20. METHOTREXATE [Concomitant]
     Active Substance: METHOTREXATE
     Indication: Prophylaxis against graft versus host disease
     Dosage: GRAFT-VERSUS- HOST DISEASE (GVHD) PROPHYLAXIS WITH CSA (TARGETING THE LEVEL OF 150 NG/ML) AND MET...
  21. CASPOFUNGIN [Concomitant]
     Active Substance: CASPOFUNGIN
     Indication: Antifungal prophylaxis
     Dosage: A SYSTEMIC BACTERIAL INFECTION BEFORE ENGRAFTMENT WAS MANAGED WITH MEROPENEM WITH CONCOMITANT ANT...
  22. ECULIZUMAB [Concomitant]
     Active Substance: ECULIZUMAB
     Dosage: - THE PATIENT WAS DIAGNOSED WITH TA-TMA AND TREATED WITH WEEKLY INTRAVENOUS ECULIZUMAB (900 MG). ...
     Route: 042

REACTIONS (1)
  - Condition aggravated [Unknown]
